FAERS Safety Report 9970200 (Version 2)
Quarter: 2014Q1

REPORT INFORMATION
  Report Type: Spontaneous
  Country: DE (occurrence: DE)
  Receive Date: 20140306
  Receipt Date: 20140306
  Transmission Date: 20141002
  Serious: Yes (Other)
  Sender: FDA-Public Use
  Company Number: PHHY2014DE015004

PATIENT
  Age: 65 Year
  Sex: Male

DRUGS (1)
  1. ULTIBRO BREEZHALER [Suspect]
     Dosage: UNK UKN, ONCE/SINGLE
     Route: 055

REACTIONS (5)
  - Choking [Recovered/Resolved]
  - Cyanosis [Recovered/Resolved]
  - Respiratory tract irritation [Recovered/Resolved]
  - Cough [Recovered/Resolved]
  - Product blister packaging issue [Unknown]
